FAERS Safety Report 4494936-3 (Version None)
Quarter: 2004Q4

REPORT INFORMATION
  Report Type: 
  Country: None (occurrence: None)
  Receive Date: 20041105
  Receipt Date: 20041105
  Transmission Date: 20050328
  Serious: Yes (Other)
  Sender: FDA-Public Use
  Company Number: None

PATIENT
  Sex: Female
  Weight: 117.9352 kg

DRUGS (3)
  1. ULTRAM [Suspect]
     Indication: ARTHRITIS
     Dosage: 50MG 1-2 Q 46 HRS
     Dates: start: 19980901
  2. ULTRAM [Suspect]
     Indication: BURSITIS
     Dosage: 50MG 1-2 Q 46 HRS
     Dates: start: 19980901
  3. ULTRAM [Suspect]
     Indication: TENDONITIS
     Dosage: 50MG 1-2 Q 46 HRS
     Dates: start: 19980901

REACTIONS (4)
  - DISEASE RECURRENCE [None]
  - HYPERSENSITIVITY [None]
  - PHARMACEUTICAL PRODUCT COMPLAINT [None]
  - PRURITUS [None]
